FAERS Safety Report 20658133 (Version 3)
Quarter: 2022Q2

REPORT INFORMATION
  Report Type: Report from Study
  Country: US (occurrence: US)
  Receive Date: 20220331
  Receipt Date: 20220617
  Transmission Date: 20220721
  Serious: Yes (Hospitalization)
  Sender: FDA-Public Use
  Company Number: US-NOVARTISTESTPH-NVSC2022US073256

PATIENT
  Sex: Male

DRUGS (1)
  1. ENTRESTO [Suspect]
     Active Substance: SACUBITRIL\VALSARTAN
     Indication: Product used for unknown indication
     Dosage: 75 MG, BID (1.5 24/26MG TABLETS TWICE A DAY)
     Route: 048
     Dates: start: 202202

REACTIONS (3)
  - Heart rate increased [Unknown]
  - Wrong technique in product usage process [Unknown]
  - Off label use [Unknown]
